FAERS Safety Report 7211418-6 (Version None)
Quarter: 2010Q4

REPORT INFORMATION
  Report Type: 
  Country: None (occurrence: None)
  Receive Date: 20101223
  Receipt Date: 20101213
  Transmission Date: 20110411
  Serious: Yes (Other)
  Sender: FDA-Public Use
  Company Number: 1000017849

PATIENT
  Age: 26 Year
  Sex: Female
  Weight: 109 kg

DRUGS (1)
  1. DINOPROSTONE (DINOPROSTONE) (VAGINAL INSERT) [Suspect]
     Indication: LABOUR INDUCTION
     Dosage: (10 MG, ONCE), VAGINAL
     Route: 067

REACTIONS (3)
  - DIZZINESS [None]
  - NAUSEA [None]
  - UTERINE HYPERTONUS [None]
